FAERS Safety Report 9286912 (Version 1)
Quarter: 2013Q2

REPORT INFORMATION
  Report Type: Spontaneous
  Country: US (occurrence: US)
  Receive Date: 20130513
  Receipt Date: 20130513
  Transmission Date: 20140414
  Serious: No
  Sender: FDA-Public Use
  Company Number: US-ASTRAZENECA-2013SE30847

PATIENT
  Age: 77 Year
  Sex: Male
  Weight: 88.5 kg

DRUGS (2)
  1. CRESTOR [Suspect]
     Indication: BLOOD CHOLESTEROL ABNORMAL
     Route: 048
     Dates: start: 2008, end: 201303
  2. LIPITOR [Concomitant]

REACTIONS (4)
  - Pain in extremity [Unknown]
  - Myalgia [Unknown]
  - Musculoskeletal pain [Unknown]
  - Drug dose omission [Unknown]
